FAERS Safety Report 7540787 (Version 3)
Quarter: 2012Q4

REPORT INFORMATION
  Report Type: 
  Country: US (occurrence: US)
  Receive Date: 20100813
  Receipt Date: 20121224
  Transmission Date: 20130627
  Serious: Yes (Hospitalization, Other)
  Sender: FDA-Public Use
  Company Number: US-ELI_LILLY_AND_COMPANY-US201008002269

PATIENT
  Age: 73 Year
  Sex: Female
  Weight: 78.46 kg

DRUGS (13)
  1. BYETTA [Suspect]
     Indication: TYPE 2 DIABETES MELLITUS
     Dosage: 5 ug, 2/D
     Route: 058
  2. BYETTA [Suspect]
     Dosage: 10 ug, 2/D
     Route: 058
  3. BYETTA [Suspect]
     Dosage: 10 ug, 2/D
     Route: 058
  4. BYETTA [Suspect]
     Dosage: 10 ug, 2/D
     Route: 058
  5. METFORMIN [Concomitant]
     Indication: TYPE 2 DIABETES MELLITUS
     Dosage: 1000 D/F, 2/D
     Route: 048
  6. XANAX [Concomitant]
     Dosage: UNK, 2/D
     Route: 048
  7. LEVOTHYROXINE [Concomitant]
     Dosage: UNK, daily (1/D)
     Route: 048
  8. ACTOS [Concomitant]
     Indication: TYPE 2 DIABETES MELLITUS
     Dosage: 30 mg, daily (1/D)
     Route: 048
  9. DIOVAN [Concomitant]
     Dosage: UNK, daily (1/D)
     Route: 048
  10. SIMVASTATIN [Concomitant]
     Dosage: UNK, daily (1/D)
     Route: 048
  11. LEXAPRO [Concomitant]
     Dosage: UNK, daily (1/D)
     Route: 048
  12. GLUCOSAMINE CHONDROITIN [Concomitant]
     Dosage: UNK, daily (1/D)
     Route: 048
  13. GLIPIZIDE [Concomitant]
     Indication: TYPE 2 DIABETES MELLITUS
     Dosage: UNK, qd
     Route: 048

REACTIONS (12)
  - Back pain [Recovered/Resolved]
  - Back pain [Recovered/Resolved]
  - Faecaloma [Unknown]
  - Fall [Recovering/Resolving]
  - Mobility decreased [Recovering/Resolving]
  - Scoliosis [Not Recovered/Not Resolved]
  - Arthritis [Recovering/Resolving]
  - Mobility decreased [Recovered/Resolved]
  - Urinary tract infection [Unknown]
  - Blood glucose abnormal [Recovering/Resolving]
  - Amnesia [Recovering/Resolving]
  - Weight decreased [Unknown]
